FAERS Safety Report 6631728-0 (Version None)
Quarter: 2010Q1

REPORT INFORMATION
  Report Type: 
  Country: None (occurrence: None)
  Receive Date: 20100312
  Receipt Date: 20100302
  Transmission Date: 20100710
  Serious: Yes (Other)
  Sender: FDA-Public Use
  Company Number: KR-PFIZER INC-2009228933

PATIENT
  Age: 57 Year
  Sex: Female
  Weight: 42 kg

DRUGS (17)
  1. SUNITINIB MALATE [Suspect]
     Indication: BREAST CANCER
     Dosage: UNK
     Route: 048
     Dates: start: 20080517
  2. SUNITINIB MALATE [Suspect]
     Dosage: 37.5 MG, 1X/DAY
     Route: 048
     Dates: start: 20090108, end: 20090402
  3. DOCETAXEL [Suspect]
     Indication: BREAST CANCER
     Dosage: UNK
     Route: 042
     Dates: start: 20080516
  4. DOCETAXEL [Suspect]
     Dosage: 104 MG, EVERY 3 WEEKS
     Route: 042
     Dates: start: 20090108, end: 20090128
  5. CEFPODOXIME PROXETIL [Concomitant]
     Dosage: 100 MG, 2X/DAY
     Dates: start: 20090212, end: 20090417
  6. PIROXICAM [Concomitant]
     Dosage: 10 MG, 2X/DAY
     Dates: start: 20081231, end: 20090417
  7. BENZETHONIUM CHLORIDE [Concomitant]
     Dosage: 100 ML, AS NEEDED
     Dates: start: 20081231, end: 20090420
  8. MYPOL [Concomitant]
     Dosage: 2 DF, 3X/DAY
     Dates: start: 20090402, end: 20090423
  9. CHLORHEXIDINE GLUCONATE [Concomitant]
     Dosage: 100 ML, AS NEEDED
     Dates: start: 20080807
  10. CIPROFLOXACIN [Concomitant]
     Dosage: 500 MG, 2X/DAY
     Dates: start: 20080827, end: 20080907
  11. RANITIDINE [Concomitant]
     Dosage: 150 MG, 2X/DAY
     Dates: start: 20080827, end: 20080829
  12. RANITIDINE [Concomitant]
     Dosage: 50 MG, UNK
     Route: 040
     Dates: start: 20080827, end: 20080827
  13. TROPISETRON [Concomitant]
     Dosage: 5 MG, UNK
     Route: 040
     Dates: start: 20080827, end: 20080827
  14. CHLORPHENIRAMINE MALEATE [Concomitant]
     Dosage: 4 MG, UNK
     Route: 040
     Dates: start: 20080827, end: 20080827
  15. FUROSEMIDE [Concomitant]
     Dosage: 20 MG, 2X/DAY
     Dates: start: 20080827, end: 20080909
  16. DEXAMETHASONE [Concomitant]
     Dosage: 10 MG, UNK
     Route: 040
     Dates: start: 20080827, end: 20080827
  17. DEXAMETHASONE [Concomitant]
     Dosage: 8 MG, 2X/DAY
     Dates: start: 20080827, end: 20080829

REACTIONS (2)
  - OSTEOMYELITIS [None]
  - SINUSITIS [None]
